FAERS Safety Report 4388663-0 (Version None)
Quarter: 2004Q2

REPORT INFORMATION
  Report Type: 
  Country: None (occurrence: None)
  Receive Date: 20040624
  Receipt Date: 20040617
  Transmission Date: 20050107
  Serious: No
  Sender: FDA-Public Use
  Company Number: 2004CG01132

PATIENT
  Age: 53 Year
  Sex: Female

DRUGS (1)
  1. HYTACAND [Suspect]
     Indication: HYPERTENSION
     Dosage: 16 MG + 12.5 MG
     Dates: start: 20040301

REACTIONS (2)
  - GENERALISED OEDEMA [None]
  - RENIN INCREASED [None]
